FAERS Safety Report 21898767 (Version 1)
Quarter: 2023Q1

REPORT INFORMATION
  Report Type: Spontaneous
  Country: US (occurrence: None)
  Receive Date: 20230122
  Receipt Date: 20230122
  Transmission Date: 20230417
  Serious: Yes (Hospitalization, Disabling, Other)
  Sender: FDA-Public Use
  Company Number: None

PATIENT
  Age: 39 Year
  Sex: Male
  Weight: 103.5 kg

DRUGS (3)
  1. ADDERALL XR [Suspect]
     Active Substance: AMPHETAMINE ASPARTATE\AMPHETAMINE SULFATE\DEXTROAMPHETAMINE SACCHARATE\DEXTROAMPHETAMINE SULFATE
     Indication: Attention deficit hyperactivity disorder
     Dosage: OTHER QUANTITY : 30 CAPSULE(S);?
     Route: 048
     Dates: start: 20040101
  2. PEPCID [Concomitant]
     Active Substance: FAMOTIDINE
  3. prilsec [Concomitant]

REACTIONS (8)
  - Hypoaesthesia oral [None]
  - Product taste abnormal [None]
  - Hypoaesthesia [None]
  - Dyskinesia [None]
  - Product tampering [None]
  - Ear infection [None]
  - Fear [None]
  - Product measured potency issue [None]

NARRATIVE: CASE EVENT DATE: 20221003
